FAERS Safety Report 22192699 (Version 1)
Quarter: 2023Q2

REPORT INFORMATION
  Report Type: Other
  Country: US (occurrence: US)
  Receive Date: 20230410
  Receipt Date: 20230410
  Transmission Date: 20230721
  Serious: Yes (Death, Hospitalization)
  Sender: FDA-Public Use
  Company Number: US-ALVOGEN-2023090014

PATIENT
  Age: 2 Year
  Sex: Male

DRUGS (2)
  1. NIFEDIPINE [Suspect]
     Active Substance: NIFEDIPINE
     Indication: Product used for unknown indication
     Route: 048
  2. LABETALOL [Suspect]
     Active Substance: LABETALOL\LABETALOL HYDROCHLORIDE
     Indication: Product used for unknown indication
     Route: 048

REACTIONS (9)
  - Death [Fatal]
  - Toxicity to various agents [Fatal]
  - Somnolence [Fatal]
  - Arrhythmia [Fatal]
  - Respiratory arrest [Fatal]
  - Hypotension [Fatal]
  - Bradycardia [Fatal]
  - Cardiac arrest [Fatal]
  - Accidental exposure to product by child [Fatal]
